FAERS Safety Report 21951862 (Version 2)
Quarter: 2023Q2

REPORT INFORMATION
  Report Type: Spontaneous
  Country: US (occurrence: US)
  Receive Date: 20230203
  Receipt Date: 20230405
  Transmission Date: 20230722
  Serious: No
  Sender: FDA-Public Use
  Company Number: US-PFIZER INC-202300043049

PATIENT
  Age: 87 Year
  Sex: Female
  Weight: 48.53 kg

DRUGS (1)
  1. IBRANCE [Suspect]
     Active Substance: PALBOCICLIB
     Indication: Breast cancer metastatic
     Dosage: UNK
     Dates: start: 201706, end: 2018

REACTIONS (2)
  - Neoplasm progression [Unknown]
  - Blood test abnormal [Unknown]
